FAERS Safety Report 5695750-3 (Version None)
Quarter: 2008Q2

REPORT INFORMATION
  Report Type: 
  Country: None (occurrence: None)
  Receive Date: 20080407
  Receipt Date: 20080328
  Transmission Date: 20081010
  Serious: Yes (Hospitalization)
  Sender: FDA-Public Use
  Company Number: JP-ELI_LILLY_AND_COMPANY-JP200712001359

PATIENT
  Sex: Female
  Weight: 41 kg

DRUGS (10)
  1. PEMETREXED [Suspect]
     Indication: PLEURAL MESOTHELIOMA MALIGNANT RECURRENT
     Dosage: 500 MG/M2, OTHER
     Route: 042
     Dates: start: 20070515, end: 20070911
  2. CISPLATIN [Suspect]
     Indication: PLEURAL MESOTHELIOMA MALIGNANT RECURRENT
     Dosage: 60 MG/M2, OTHER
     Route: 042
     Dates: start: 20070515, end: 20070619
  3. CISPLATIN [Suspect]
     Dosage: 50 MG/M2, OTHER
     Route: 042
     Dates: start: 20070731
  4. PANVITAN [Concomitant]
     Dosage: 1 G, DAILY (1/D)
     Route: 048
     Dates: start: 20070508, end: 20080111
  5. VANCOMIN-S [Concomitant]
     Dosage: 1 MG, OTHER
     Route: 030
     Dates: start: 20070508
  6. GASTER D [Concomitant]
     Indication: PROPHYLAXIS
     Dosage: 20 MG, DAILY (1/D)
     Route: 048
     Dates: end: 20070626
  7. SELBEX [Concomitant]
     Indication: PROPHYLAXIS
     Dosage: 150 MG, DAILY (1/D)
     Route: 048
  8. LOBU [Concomitant]
     Indication: CANCER PAIN
     Dosage: 60 MG, DAILY (1/D)
     Route: 048
     Dates: start: 20070508
  9. TAKEPRON [Concomitant]
     Indication: PROPHYLAXIS
     Dosage: 30 MG, DAILY (1/D)
     Route: 048
     Dates: start: 20070627
  10. ITRIZOLE [Concomitant]
     Indication: ASPERGILLOSIS
     Dosage: 200 MG, DAILY (1/D)
     Route: 048
     Dates: start: 20070618, end: 20070804

REACTIONS (2)
  - ANAEMIA [None]
  - HYPERKALAEMIA [None]
